FAERS Safety Report 25302354 (Version 1)
Quarter: 2025Q2

REPORT INFORMATION
  Report Type: Spontaneous
  Country: IT (occurrence: IT)
  Receive Date: 20250512
  Receipt Date: 20250512
  Transmission Date: 20250716
  Serious: Yes (Other)
  Sender: BAUSCH AND LOMB
  Company Number: None

PATIENT
  Age: 55 Year
  Sex: Female
  Weight: 70 kg

DRUGS (2)
  1. DEXAMETHASONE [Suspect]
     Active Substance: DEXAMETHASONE
     Indication: Product used for unknown indication
     Route: 008
     Dates: start: 20231128, end: 20231128
  2. LEVOBUPIVACAINE [Suspect]
     Active Substance: LEVOBUPIVACAINE
     Indication: Product used for unknown indication
     Route: 008
     Dates: start: 20231128, end: 20231128

REACTIONS (2)
  - Arachnoiditis [Not Recovered/Not Resolved]
  - Intracranial hypotension [Not Recovered/Not Resolved]

NARRATIVE: CASE EVENT DATE: 20231221
